FAERS Safety Report 6112608-6 (Version None)
Quarter: 2009Q1

REPORT INFORMATION
  Report Type: 
  Country: None (occurrence: None)
  Receive Date: 20090312
  Receipt Date: 20090311
  Transmission Date: 20090719
  Serious: Yes (Life-Threatening)
  Sender: FDA-Public Use
  Company Number: GB-CELGENEUS-167-C5013-08120578

PATIENT
  Sex: Female

DRUGS (4)
  1. CC-5013 [Suspect]
     Route: 048
     Dates: start: 20060623
  2. CC-5013 [Suspect]
     Route: 048
     Dates: start: 20061108, end: 20061128
  3. CC-5013 [Suspect]
     Route: 048
     Dates: start: 20061212
  4. NEUPOGEN [Concomitant]
     Indication: NEUTROPENIA
     Route: 058
     Dates: start: 20060719, end: 20070620

REACTIONS (1)
  - NEUTROPENIA [None]
